FAERS Safety Report 8249909-1 (Version None)
Quarter: 2012Q2

REPORT INFORMATION
  Report Type: 
  Country: None (occurrence: None)
  Receive Date: 20120402
  Receipt Date: 20120326
  Transmission Date: 20120825
  Serious: Yes (Other)
  Sender: FDA-Public Use
  Company Number: PHHY2012JP016859

PATIENT
  Sex: Male

DRUGS (11)
  1. SPELEAR [Concomitant]
     Route: 048
  2. MAGMITT [Concomitant]
     Route: 048
  3. VOLTAREN [Suspect]
     Indication: PAIN
     Dosage: 100 MG, 4 TIMES DAILY
     Route: 054
     Dates: start: 20120201, end: 20120201
  4. MUCOSTA [Concomitant]
     Route: 048
  5. WARFARIN SODIUM [Concomitant]
  6. PLAVIX [Concomitant]
     Route: 048
  7. ALLEGRA [Concomitant]
     Route: 048
  8. AMOBAN [Concomitant]
  9. RABEPRAZOLE SODIUM [Concomitant]
     Route: 048
  10. CONFATANIN [Concomitant]
  11. PROCYLIN [Concomitant]
     Route: 048

REACTIONS (1)
  - BLOOD SODIUM DECREASED [None]
